FAERS Safety Report 4720202-4 (Version None)
Quarter: 2005Q3

REPORT INFORMATION
  Report Type: 
  Country: None (occurrence: None)
  Receive Date: 20050719
  Receipt Date: 20050719
  Transmission Date: 20060218
  Serious: Yes (Other)
  Sender: FDA-Public Use
  Company Number: None

PATIENT
  Age: 25 Year
  Sex: Female
  Weight: 70.3075 kg

DRUGS (3)
  1. DEPO-PROVERA [Suspect]
     Indication: CONTRACEPTION
     Dosage: 3 MONTHS INTRAMUSCULAR
     Route: 030
     Dates: start: 20031201, end: 20050801
  2. DEPO-PROVERA [Suspect]
     Indication: DYSMENORRHOEA
     Dosage: 3 MONTHS INTRAMUSCULAR
     Route: 030
     Dates: start: 20031201, end: 20050801
  3. DEPO-PROVERA [Suspect]
     Indication: PREMENSTRUAL SYNDROME
     Dosage: 3 MONTHS INTRAMUSCULAR
     Route: 030
     Dates: start: 20031201, end: 20050801

REACTIONS (7)
  - ALOPECIA [None]
  - EMOTIONAL DISORDER [None]
  - HAIR GROWTH ABNORMAL [None]
  - LIBIDO DECREASED [None]
  - MANIA [None]
  - MOOD SWINGS [None]
  - SELF INJURIOUS BEHAVIOUR [None]
